FAERS Safety Report 14683290 (Version 2)
Quarter: 2018Q2

REPORT INFORMATION
  Report Type: Report from Study
  Country: US (occurrence: US)
  Receive Date: 20180327
  Receipt Date: 20180417
  Transmission Date: 20180711
  Serious: Yes (Death, Other)
  Sender: FDA-Public Use
  Company Number: US-GILEAD-2018-0323142

PATIENT
  Age: 15 Year
  Sex: Female

DRUGS (4)
  1. AMBRISENTAN [Suspect]
     Active Substance: AMBRISENTAN
     Indication: PULMONARY ARTERIAL HYPERTENSION
     Dosage: 10 MG, QD
     Route: 048
     Dates: start: 20160127
  2. AMBRISENTAN [Suspect]
     Active Substance: AMBRISENTAN
     Indication: RESPIRATORY FAILURE
  3. TREPROSTINIL [Concomitant]
     Active Substance: TREPROSTINIL
  4. SILDENAFIL. [Concomitant]
     Active Substance: SILDENAFIL

REACTIONS (4)
  - Off label use [Not Recovered/Not Resolved]
  - Malaise [Not Recovered/Not Resolved]
  - Respiratory failure [Fatal]
  - Cardiac failure [Fatal]

NARRATIVE: CASE EVENT DATE: 20160127
